FAERS Safety Report 24944348 (Version 2)
Quarter: 2025Q1

REPORT INFORMATION
  Report Type: Spontaneous
  Country: US (occurrence: US)
  Receive Date: 20250208
  Receipt Date: 20250219
  Transmission Date: 20250408
  Serious: No
  Sender: ABBVIE
  Company Number: US-ABBVIE-6116903

PATIENT
  Age: 42 Year
  Sex: Female
  Weight: 58 kg

DRUGS (4)
  1. RINVOQ [Suspect]
     Active Substance: UPADACITINIB
     Indication: Still^s disease
     Route: 048
     Dates: start: 20220513
  2. LEFLUNOMIDE [Concomitant]
     Active Substance: LEFLUNOMIDE
     Indication: Product used for unknown indication
     Dosage: 20
     Dates: start: 20211008
  3. LEFLUNOMIDE [Concomitant]
     Active Substance: LEFLUNOMIDE
     Indication: Product used for unknown indication
     Dosage: 10
     Dates: start: 20250105, end: 20250113
  4. GABAPENTIN [Concomitant]
     Active Substance: GABAPENTIN
     Indication: Product used for unknown indication
     Dates: start: 20221111

REACTIONS (10)
  - Liver disorder [Recovered/Resolved]
  - Off label use [Unknown]
  - Gallbladder disorder [Unknown]
  - Cholelithiasis [Unknown]
  - Blood albumin increased [Unknown]
  - Vitamin B12 increased [Unknown]
  - Hepatitis A antibody positive [Unknown]
  - Hepatic enzyme increased [Recovering/Resolving]
  - Abdominal pain upper [Unknown]
  - Hepatitis A antibody abnormal [Unknown]

NARRATIVE: CASE EVENT DATE: 20221101
